FAERS Safety Report 16254025 (Version 1)
Quarter: 2019Q2

REPORT INFORMATION
  Report Type: Spontaneous
  Country: IL (occurrence: IL)
  Receive Date: 20190430
  Receipt Date: 20190430
  Transmission Date: 20190711
  Serious: Yes (Hospitalization, Other)
  Sender: FDA-Public Use
  Company Number: PHHY2019IL048868

PATIENT
  Age: 58 Year
  Sex: Female

DRUGS (3)
  1. ACLASTA [Suspect]
     Active Substance: ZOLEDRONIC ACID
     Indication: THYROID CANCER METASTATIC
     Dosage: UNK UNK, ONCE/SINGLE
     Route: 042
     Dates: start: 20160912
  2. ELTROXIN [Concomitant]
     Active Substance: LEVOTHYROXINE
     Indication: PRODUCT USED FOR UNKNOWN INDICATION
     Route: 065
  3. LOSEC [Concomitant]
     Active Substance: OMEPRAZOLE
     Indication: PRODUCT USED FOR UNKNOWN INDICATION

REACTIONS (10)
  - Hyperaemia [Recovered/Resolved]
  - Parophthalmia [Recovered/Resolved]
  - Disorder of orbit [Recovered/Resolved]
  - Eye pain [Recovered/Resolved]
  - Eye oedema [Recovered/Resolved]
  - Iridocyclitis [Recovered/Resolved]
  - Conjunctival oedema [Recovered/Resolved]
  - Eye movement disorder [Recovered/Resolved]
  - Product use in unapproved indication [Unknown]
  - Scleritis [Recovered/Resolved]

NARRATIVE: CASE EVENT DATE: 20160912
